FAERS Safety Report 20796662 (Version 3)
Quarter: 2022Q2

REPORT INFORMATION
  Report Type: Spontaneous
  Country: GB (occurrence: None)
  Receive Date: 20220506
  Receipt Date: 20220613
  Transmission Date: 20220721
  Serious: Yes (Other)
  Sender: FDA-Public Use
  Company Number: GB-Merck Healthcare KGaA-9317906

PATIENT
  Age: 55 Year
  Sex: Male

DRUGS (2)
  1. AVELUMAB [Suspect]
     Active Substance: AVELUMAB
     Indication: Papillary thyroid cancer
     Dates: start: 20201020
  2. INLYTA [Suspect]
     Active Substance: AXITINIB
     Indication: Papillary thyroid cancer
     Route: 048
     Dates: start: 20201020

REACTIONS (2)
  - Disease progression [Unknown]
  - Off label use [Unknown]

NARRATIVE: CASE EVENT DATE: 20201020
